FAERS Safety Report 5759365-0 (Version None)
Quarter: 2008Q2

REPORT INFORMATION
  Report Type: 
  Country: None (occurrence: None)
  Receive Date: 20080605
  Receipt Date: 20080529
  Transmission Date: 20081010
  Serious: Yes (Other)
  Sender: FDA-Public Use
  Company Number: US-JNJFOC-20080600158

PATIENT
  Age: 86 Year
  Sex: Female
  Weight: 54.43 kg

DRUGS (6)
  1. TOPAMAX [Suspect]
     Indication: ESSENTIAL TREMOR
     Route: 048
  2. CELEXA [Concomitant]
     Indication: DEPRESSION
     Dosage: TOOK FOR ^YEARS^
     Route: 048
  3. QUIDINE [Concomitant]
     Indication: MITRAL VALVE PROLAPSE
     Dosage: TOOK FOR ^YEARS^
     Route: 048
  4. AGGRENOX [Concomitant]
     Indication: TRANSIENT ISCHAEMIC ATTACK
     Route: 048
  5. ARICEPT [Concomitant]
     Indication: MEMORY IMPAIRMENT
     Route: 048
  6. NAMENDA [Concomitant]
     Indication: MEMORY IMPAIRMENT
     Route: 048

REACTIONS (9)
  - AGGRESSION [None]
  - CONFUSIONAL STATE [None]
  - COUGH [None]
  - DECREASED APPETITE [None]
  - DEMENTIA [None]
  - DEPRESSED MOOD [None]
  - GAIT DISTURBANCE [None]
  - MOOD SWINGS [None]
  - THINKING ABNORMAL [None]
